FAERS Safety Report 8053071-8 (Version None)
Quarter: 2012Q1

REPORT INFORMATION
  Report Type: 
  Country: None (occurrence: None)
  Receive Date: 20120112
  Receipt Date: 20120107
  Transmission Date: 20120608
  Serious: Yes (Other)
  Sender: FDA-Public Use
  Company Number: CRC-11-246

PATIENT
  Sex: Female
  Weight: 92.0802 kg

DRUGS (3)
  1. TOPIRAMATE [Suspect]
     Indication: CONVULSION
     Dosage: 2 TABS AT BEDTIME; ORAL
     Route: 048
  2. LOPRESSOR [Concomitant]
  3. METHYLDOPA [Concomitant]

REACTIONS (4)
  - MATERNAL EXPOSURE DURING PREGNANCY [None]
  - VISUAL ACUITY REDUCED [None]
  - AMNESIA [None]
  - ABORTION SPONTANEOUS [None]
